FAERS Safety Report 9412050 (Version 3)
Quarter: 2016Q1

REPORT INFORMATION
  Report Type: Report from Study
  Country: US (occurrence: US)
  Receive Date: 20130722
  Receipt Date: 20160311
  Transmission Date: 20160526
  Serious: No
  Sender: FDA-Public Use
  Company Number: US-009507513-1307USA004915

PATIENT
  Age: 57 Year
  Sex: Male

DRUGS (4)
  1. VICTRELIS [Suspect]
     Active Substance: BOCEPREVIR
     Indication: CHRONIC HEPATITIS C
     Dosage: 200MG 4 TABS EVERY 7-9 HOURS
     Route: 048
     Dates: start: 201306
  2. PEGASYS [Suspect]
     Active Substance: PEGINTERFERON ALFA-2A
     Indication: CHRONIC HEPATITIS C
     Dosage: 180 MICROGRAM, 0.5ML, QW, PROCLICK AUTOINJECTOR, CONVENIENCE PACK
     Route: 058
     Dates: start: 20130508
  3. COPEGUS [Suspect]
     Active Substance: RIBAVIRIN
     Indication: CHRONIC HEPATITIS C
     Dosage: 600 MG, BID
     Route: 048
     Dates: start: 20130508
  4. INCIVEK [Suspect]
     Active Substance: TELAPREVIR
     Indication: CHRONIC HEPATITIS C
     Dosage: UNKNOWN
     Route: 065

REACTIONS (2)
  - Hepatitis C [Not Recovered/Not Resolved]
  - Hepatic cirrhosis [Unknown]
